FAERS Safety Report 19953793 (Version 2)
Quarter: 2022Q1

REPORT INFORMATION
  Report Type: Spontaneous
  Country: US (occurrence: US)
  Receive Date: 20211014
  Receipt Date: 20220111
  Transmission Date: 20220423
  Serious: Yes (Hospitalization, Other)
  Sender: FDA-Public Use
  Company Number: US-MLMSERVICE-20210927-3130639-1

PATIENT
  Age: 81 Year
  Sex: Male

DRUGS (4)
  1. LIDOCAINE [Suspect]
     Active Substance: LIDOCAINE
     Indication: Nerve block
     Dosage: 5 MILLILITER
     Route: 065
     Dates: start: 202102, end: 202102
  2. ROPIVACAINE HYDROCHLORIDE [Interacting]
     Active Substance: ROPIVACAINE HYDROCHLORIDE
     Indication: Nerve block
     Dosage: 30 MILLILITER
     Route: 065
     Dates: start: 202102
  3. DAPSONE [Interacting]
     Active Substance: DAPSONE
     Indication: Pemphigoid
     Dosage: UNK
     Route: 065
     Dates: start: 202011, end: 202102
  4. FENTANYL [Concomitant]
     Active Substance: FENTANYL
     Indication: Anxiety
     Dosage: 25 MICROGRAM
     Route: 065
     Dates: start: 202102

REACTIONS (3)
  - Condition aggravated [Recovered/Resolved]
  - Methaemoglobinaemia [Recovered/Resolved]
  - Drug interaction [Recovered/Resolved]

NARRATIVE: CASE EVENT DATE: 20210101
